FAERS Safety Report 10764907 (Version 1)
Quarter: 2015Q1

REPORT INFORMATION
  Report Type: Spontaneous
  Country: US (occurrence: US)
  Receive Date: 20150205
  Receipt Date: 20150205
  Transmission Date: 20150721
  Serious: No
  Sender: FDA-Public Use
  Company Number: US-009507513-1502USA000282

PATIENT
  Sex: Female

DRUGS (3)
  1. ZETIA [Suspect]
     Active Substance: EZETIMIBE
     Dosage: 10 MG, UNK
     Route: 048
     Dates: start: 20141213
  2. ZETIA [Suspect]
     Active Substance: EZETIMIBE
     Dosage: 5 MG, UNK
     Route: 048
  3. ZETIA [Suspect]
     Active Substance: EZETIMIBE
     Dosage: 2.5 MG, QOD
     Route: 048
     Dates: end: 20150117

REACTIONS (6)
  - Arthralgia [Recovering/Resolving]
  - Myalgia [Recovering/Resolving]
  - Palpitations [Recovered/Resolved]
  - Wrong technique in drug usage process [Unknown]
  - Fatigue [Recovering/Resolving]
  - Depression [Recovering/Resolving]
